FAERS Safety Report 10954757 (Version 1)
Quarter: 2015Q1

REPORT INFORMATION
  Report Type: Spontaneous
  Country: US (occurrence: US)
  Receive Date: 20150325
  Receipt Date: 20150325
  Transmission Date: 20150721
  Serious: No
  Sender: FDA-Public Use
  Company Number: US-BIOMARINAP-US-2015-105860

PATIENT
  Age: 17 Year
  Sex: Male
  Weight: 33.3 kg

DRUGS (1)
  1. VIMIZIM [Suspect]
     Active Substance: ELOSULFASE ALFA
     Indication: MUCOPOLYSACCHARIDOSIS IV
     Dosage: 65 MG, QW
     Route: 042

REACTIONS (3)
  - Headache [Unknown]
  - Chills [Unknown]
  - Dizziness [Unknown]

NARRATIVE: CASE EVENT DATE: 20150311
